FAERS Safety Report 12316862 (Version 2)
Quarter: 2016Q2

REPORT INFORMATION
  Report Type: Spontaneous
  Country: GB (occurrence: GB)
  Receive Date: 20160429
  Receipt Date: 20160509
  Transmission Date: 20160815
  Serious: Yes (Other)
  Sender: FDA-Public Use
  Company Number: GB-BEH-2016061707

PATIENT
  Age: 70 Year
  Sex: Male

DRUGS (2)
  1. PROTHROMBIN COMPLEX CONCENTRATE NOS [Suspect]
     Active Substance: COAGULATION FACTOR IX HUMAN\COAGULATION FACTOR VII HUMAN\COAGULATION FACTOR X HUMAN\PROTHROMBIN
     Indication: PROCOAGULANT THERAPY
     Route: 042
  2. VITAMIN K [Suspect]
     Active Substance: PHYTONADIONE
     Indication: PROCOAGULANT THERAPY

REACTIONS (3)
  - Hemiparesis [Unknown]
  - Somnolence [Unknown]
  - Transverse sinus thrombosis [Unknown]
